FAERS Safety Report 4867332-4 (Version None)
Quarter: 2005Q4

REPORT INFORMATION
  Report Type: 
  Country: None (occurrence: None)
  Receive Date: 20051223
  Receipt Date: 20051223
  Transmission Date: 20060501
  Serious: Yes (Hospitalization)
  Sender: FDA-Public Use
  Company Number: None

PATIENT
  Age: 69 Year
  Sex: Female

DRUGS (6)
  1. TEGASEROD   6MG [Suspect]
     Indication: IRRITABLE BOWEL SYNDROME
     Dosage: 6MG  BID  PO
     Route: 048
     Dates: start: 20040507, end: 20050920
  2. MAXZIDE [Concomitant]
  3. ALENDRONATE SODIUM [Concomitant]
  4. NIFEDIPINE [Concomitant]
  5. SALMON OIL [Concomitant]
  6. NEXIUM [Concomitant]

REACTIONS (2)
  - COLITIS ISCHAEMIC [None]
  - HAEMATOCHEZIA [None]
